FAERS Safety Report 12387938 (Version 1)
Quarter: 2016Q2

REPORT INFORMATION
  Report Type: Spontaneous
  Country: US (occurrence: US)
  Receive Date: 20160520
  Receipt Date: 20160520
  Transmission Date: 20160815
  Serious: No
  Sender: FDA-Public Use
  Company Number: US-STRIDES ARCOLAB LIMITED-2016SP000549

PATIENT

DRUGS (1)
  1. VANCOMYCIN [Suspect]
     Active Substance: VANCOMYCIN
     Indication: BETA HAEMOLYTIC STREPTOCOCCAL INFECTION
     Dosage: 15 MG/KG, EVERY 12 HRS
     Route: 042

REACTIONS (2)
  - Flushing [Recovered/Resolved]
  - Exposure during pregnancy [Unknown]
